FAERS Safety Report 19441755 (Version 1)
Quarter: 2021Q2

REPORT INFORMATION
  Report Type: Spontaneous
  Country: IT (occurrence: IT)
  Receive Date: 20210621
  Receipt Date: 20210621
  Transmission Date: 20210717
  Serious: Yes (Other)
  Sender: FDA-Public Use
  Company Number: IT-TELIGENT, INC-20210600055

PATIENT

DRUGS (2)
  1. CIPROFLOXACIN UNSPECIFIED [Suspect]
     Active Substance: CIPROFLOXACIN
     Indication: ANTIBIOTIC THERAPY
     Dosage: 500 MILLIGRAM, BID
     Dates: start: 20201025, end: 20201105
  2. CIPROFLOXACIN UNSPECIFIED [Interacting]
     Active Substance: CIPROFLOXACIN
     Indication: PYREXIA

REACTIONS (5)
  - Thrombocytopenia [Unknown]
  - Toxicity to various agents [Unknown]
  - Asthenia [Unknown]
  - Drug interaction [Unknown]
  - Febrile neutropenia [Unknown]
